FAERS Safety Report 8841614 (Version 1)
Quarter: 2012Q4

REPORT INFORMATION
  Report Type: 
  Country: US (occurrence: US)
  Receive Date: 20121015
  Receipt Date: 20121015
  Transmission Date: 20130627
  Serious: Yes (Congenital Anomaly, Other)
  Sender: FDA-Public Use
  Company Number: US-PFIZER INC-2012251947

PATIENT
  Age: 7 Year
  Sex: Male

DRUGS (1)
  1. EFFEXOR [Suspect]
     Indication: DEPRESSION
     Route: 064

REACTIONS (4)
  - Maternal exposure timing unspecified [Not Recovered/Not Resolved]
  - Pulmonary artery atresia [Not Recovered/Not Resolved]
  - Ventricular hypoplasia [Not Recovered/Not Resolved]
  - Congenital heart valve disorder [Not Recovered/Not Resolved]
